FAERS Safety Report 24569131 (Version 5)
Quarter: 2025Q2

REPORT INFORMATION
  Report Type: Report from Study
  Country: US (occurrence: US)
  Receive Date: 20241031
  Receipt Date: 20250612
  Transmission Date: 20250716
  Serious: Yes (Death, Hospitalization, Other)
  Sender: TAKEDA
  Company Number: US-TAKEDA-2024TUS107386

PATIENT
  Age: 79 Year
  Sex: Male
  Weight: 84 kg

DRUGS (2)
  1. .ALPHA.1-PROTEINASE INHIBITOR HUMAN [Suspect]
     Active Substance: .ALPHA.1-PROTEINASE INHIBITOR HUMAN
     Indication: Alpha-1 antitrypsin deficiency
  2. .ALPHA.1-PROTEINASE INHIBITOR HUMAN [Suspect]
     Active Substance: .ALPHA.1-PROTEINASE INHIBITOR HUMAN
     Dosage: 60 MILLIGRAM/KILOGRAM, 1/WEEK
     Dates: start: 20210503, end: 20250414

REACTIONS (10)
  - Death [Fatal]
  - Lung carcinoma cell type unspecified stage IV [Unknown]
  - Triplopia [Unknown]
  - Metastases to central nervous system [Unknown]
  - Hepatic cancer metastatic [Unknown]
  - Asthenia [Unknown]
  - Fatigue [Unknown]
  - Liver disorder [Unknown]
  - Renal disorder [Unknown]
  - Pain in extremity [Unknown]

NARRATIVE: CASE EVENT DATE: 20250512
